FAERS Safety Report 10297208 (Version 1)
Quarter: 2014Q3

REPORT INFORMATION
  Report Type: Spontaneous
  Country: PL (occurrence: PL)
  Receive Date: 20140711
  Receipt Date: 20140711
  Transmission Date: 20150326
  Serious: Yes (Congenital Anomaly)
  Sender: FDA-Public Use
  Company Number: PL-MERCK-1407POL004284

PATIENT
  Age: 3 Year
  Sex: Male

DRUGS (1)
  1. PROSCAR [Suspect]
     Active Substance: FINASTERIDE
     Dosage: UNK
     Route: 064
     Dates: start: 2002

REACTIONS (2)
  - Congenital genital malformation male [Unknown]
  - Exposure via father [Unknown]

NARRATIVE: CASE EVENT DATE: 2011
